FAERS Safety Report 7511294-8 (Version None)
Quarter: 2011Q2

REPORT INFORMATION
  Report Type: 
  Country: None (occurrence: None)
  Receive Date: 20110531
  Receipt Date: 20110513
  Transmission Date: 20111010
  Serious: Yes (Other)
  Sender: FDA-Public Use
  Company Number: US-BAYER-201033960NA

PATIENT
  Age: 21 Year
  Sex: Female
  Weight: 81.633 kg

DRUGS (5)
  1. SULFAMETHOXAZOLE [Concomitant]
     Dosage: 160 MG, UNK
  2. CIPROFLOXACIN [Concomitant]
     Dosage: 500 MG, UNK
  3. ACETAMINOPHEN AND HYDROCODONE BITARTRATE [Concomitant]
  4. YAZ [Suspect]
     Indication: PREMENSTRUAL SYNDROME
     Route: 048
     Dates: start: 20050101
  5. SULFAMETHOXAZOLE [Concomitant]
     Dosage: 800 MG, UNK

REACTIONS (8)
  - CHOLECYSTITIS [None]
  - NAUSEA [None]
  - ASPARTATE AMINOTRANSFERASE INCREASED [None]
  - MURPHY'S SIGN POSITIVE [None]
  - ABDOMINAL PAIN [None]
  - HYPERHIDROSIS [None]
  - ALANINE AMINOTRANSFERASE INCREASED [None]
  - BLOOD ALKALINE PHOSPHATASE INCREASED [None]
